FAERS Safety Report 16361689 (Version 1)
Quarter: 2019Q3

REPORT INFORMATION
  Report Type: Spontaneous
  Country: US (occurrence: US)
  Receive Date: 20190524
  Receipt Date: 20190524
  Transmission Date: 20191004
  Serious: Yes (Hospitalization)
  Sender: FDA-Public Use
  Company Number: None

PATIENT
  Age: 25 Month
  Sex: Female
  Weight: 14.85 kg

DRUGS (1)
  1. TAMIFLU [Suspect]
     Active Substance: OSELTAMIVIR PHOSPHATE
     Indication: INFLUENZA B VIRUS TEST POSITIVE
     Dates: start: 20190522, end: 20190523

REACTIONS (1)
  - Rash generalised [None]

NARRATIVE: CASE EVENT DATE: 20190524
